FAERS Safety Report 5554934-5 (Version None)
Quarter: 2007Q4

REPORT INFORMATION
  Report Type: 
  Country: None (occurrence: None)
  Receive Date: 20071213
  Receipt Date: 20071205
  Transmission Date: 20080405
  Serious: Yes (Other)
  Sender: FDA-Public Use
  Company Number: JP-ASTRAZENECA-2007AP07766

PATIENT
  Age: 41 Year
  Sex: Male

DRUGS (3)
  1. TENORMIN [Suspect]
     Dosage: 30 TABLETS WERE TAKEN AS SUICIDE ATTEMPT
     Route: 048
     Dates: start: 20070707
  2. UNKNOWNDRUG [Suspect]
     Route: 065
     Dates: start: 20070707
  3. UNKNOWNDRUG [Suspect]
     Route: 065
     Dates: start: 20070708

REACTIONS (4)
  - DIARRHOEA [None]
  - GASTROINTESTINAL PAIN [None]
  - OVERDOSE [None]
  - SUICIDE ATTEMPT [None]
